FAERS Safety Report 5047170-2 (Version None)
Quarter: 2006Q3

REPORT INFORMATION
  Report Type: 
  Country: None (occurrence: None)
  Receive Date: 20060703
  Receipt Date: 20060621
  Transmission Date: 20061208
  Serious: Yes (Hospitalization, Other)
  Sender: FDA-Public Use
  Company Number: 2006060375

PATIENT
  Sex: Male

DRUGS (2)
  1. ARTHROTEC [Suspect]
     Indication: ILL-DEFINED DISORDER
     Dosage: ORAL
     Route: 048
     Dates: end: 20030507
  2. IBUPROFEN [Suspect]
     Indication: ILL-DEFINED DISORDER

REACTIONS (2)
  - GASTRIC ULCER HAEMORRHAGE [None]
  - INTERVERTEBRAL DISC COMPRESSION [None]
